FAERS Safety Report 22621043 (Version 5)
Quarter: 2023Q4

REPORT INFORMATION
  Report Type: Spontaneous
  Country: US (occurrence: US)
  Receive Date: 20230620
  Receipt Date: 20231107
  Transmission Date: 20240109
  Serious: No
  Sender: FDA-Public Use
  Company Number: US-BRISTOL-MYERS SQUIBB COMPANY-2023-086650

PATIENT
  Age: 73 Year
  Sex: Female
  Weight: 56.24 kg

DRUGS (5)
  1. POMALYST [Suspect]
     Active Substance: POMALIDOMIDE
     Indication: Plasma cell myeloma
     Dosage: FREQ - ON DAYS 1-7 AND 15-21 OF EVERY 28-DAY CYCLE
     Route: 048
     Dates: start: 20190402
  2. POMALYST [Suspect]
     Active Substance: POMALIDOMIDE
     Dosage: FREQ - ON DAYS 1-7 AND 15-21 OF EVERY 28-DAY CYCLE
     Route: 048
     Dates: start: 20190402
  3. DEXAMETHASONE [Suspect]
     Active Substance: DEXAMETHASONE
     Indication: Product used for unknown indication
     Route: 048
  4. DEXAMETHASONE [Suspect]
     Active Substance: DEXAMETHASONE
     Dosage: DEXAMETHASONE 20MG ONCE A WEEK ON THURSDAYS EVEN ON THE WEEK OFF FROM POMALYST.
  5. DEXAMETHASONE [Suspect]
     Active Substance: DEXAMETHASONE
     Dosage: FREQUENCY: WEEKLY
     Route: 048
     Dates: start: 20230905

REACTIONS (11)
  - Laboratory test abnormal [Not Recovered/Not Resolved]
  - Off label use [Unknown]
  - Monoclonal immunoglobulin present [Not Recovered/Not Resolved]
  - Musculoskeletal stiffness [Not Recovered/Not Resolved]
  - Pain [Not Recovered/Not Resolved]
  - Insomnia [Not Recovered/Not Resolved]
  - Immunoglobulins increased [Not Recovered/Not Resolved]
  - Rash pruritic [Not Recovered/Not Resolved]
  - Swelling [Not Recovered/Not Resolved]
  - Myalgia [Not Recovered/Not Resolved]
  - Back pain [Unknown]
